FAERS Safety Report 11444743 (Version 1)
Quarter: 2015Q3

REPORT INFORMATION
  Report Type: Spontaneous
  Country: US (occurrence: None)
  Receive Date: 20150901
  Receipt Date: 20150901
  Transmission Date: 20151125
  Serious: Yes (Hospitalization)
  Sender: FDA-Public Use
  Company Number: None

PATIENT
  Age: 37 Year
  Sex: Female
  Weight: 97.07 kg

DRUGS (14)
  1. OMEGA 3 [Concomitant]
     Active Substance: OMEGA-3 FATTY ACIDS
  2. ZOFRAN [Concomitant]
     Active Substance: ONDANSETRON HYDROCHLORIDE
  3. LEVOTHYROXINE. [Concomitant]
     Active Substance: LEVOTHYROXINE
  4. FUROSEMIDE. [Concomitant]
     Active Substance: FUROSEMIDE
  5. MULTIVITAMIN [Concomitant]
     Active Substance: VITAMINS
  6. XIFAXAN [Concomitant]
     Active Substance: RIFAXIMIN
  7. SIMEPRAVIR [Suspect]
     Active Substance: SIMEPREVIR
     Indication: HEPATITIS C
     Route: 048
     Dates: start: 20140827, end: 20140919
  8. ACIPHEX [Concomitant]
     Active Substance: RABEPRAZOLE SODIUM
  9. SPIRONOLACTONE. [Concomitant]
     Active Substance: SPIRONOLACTONE
  10. SOVALDI [Suspect]
     Active Substance: SOFOSBUVIR
     Indication: HEPATITIS C
     Route: 048
     Dates: start: 20140827, end: 20140919
  11. VITAMIN D [Concomitant]
     Active Substance: CHOLECALCIFEROL
  12. LACTULOSE. [Concomitant]
     Active Substance: LACTULOSE
  13. VITAMIN C [Concomitant]
     Active Substance: ASCORBIC ACID
  14. CALCIUM [Concomitant]
     Active Substance: CALCIUM

REACTIONS (9)
  - Migraine [None]
  - Vitamin D deficiency [None]
  - Neutropenia [None]
  - Dehydration [None]
  - Abdominal pain [None]
  - Vomiting [None]
  - Gastrooesophageal reflux disease [None]
  - Hyperbilirubinaemia [None]
  - Nausea [None]

NARRATIVE: CASE EVENT DATE: 20140914
